FAERS Safety Report 5323260-1 (Version None)
Quarter: 2007Q2

REPORT INFORMATION
  Report Type: 
  Country: None (occurrence: None)
  Receive Date: 20070220
  Receipt Date: 20061205
  Transmission Date: 20071010
  Serious: No
  Sender: FDA-Public Use
  Company Number: WAES 0612USA00789

PATIENT
  Age: 81 Year
  Sex: Male
  Weight: 93.441 kg

DRUGS (11)
  1. JANUVIA [Suspect]
     Indication: DIABETES MELLITUS NON-INSULIN-DEPENDENT
     Dosage: 50 MG, DAILY, PO
     Route: 048
     Dates: start: 20061102
  2. ADVAIR DISKUS 100/50 [Concomitant]
  3. ALTACE [Concomitant]
  4. AMARYL [Concomitant]
  5. DIOVAN [Concomitant]
  6. GLUCOPHAGE [Concomitant]
  7. LIPITOR [Concomitant]
  8. LOPID [Concomitant]
  9. TOPROL-XL [Concomitant]
  10. ZOLOFT [Concomitant]
  11. ASPIRIN [Concomitant]

REACTIONS (1)
  - BLOOD PRESSURE INCREASED [None]
